FAERS Safety Report 20679669 (Version 1)
Quarter: 2022Q2

REPORT INFORMATION
  Report Type: Report from Study
  Country: US (occurrence: US)
  Receive Date: 20220406
  Receipt Date: 20220406
  Transmission Date: 20220721
  Serious: Yes (Other)
  Sender: FDA-Public Use
  Company Number: US-PFIZER INC-202200506436

PATIENT
  Age: 82 Year
  Sex: Male

DRUGS (1)
  1. CARDURA [Suspect]
     Active Substance: DOXAZOSIN MESYLATE
     Dosage: UNK

REACTIONS (1)
  - Intellectual disability [Unknown]
